FAERS Safety Report 25881612 (Version 1)
Quarter: 2025Q4

REPORT INFORMATION
  Report Type: Spontaneous
  Country: US (occurrence: US)
  Receive Date: 20251005
  Receipt Date: 20251005
  Transmission Date: 20260117
  Serious: Yes (Other)
  Sender: AIMMUNE
  Company Number: US-AIMMUNE THERAPEUTICS, INC.-2025AIMT00811

PATIENT

DRUGS (2)
  1. VOWST [Suspect]
     Active Substance: DONOR HUMAN STOOL SPORES (ETHANOL TREATED)
     Indication: Clostridium difficile infection
     Dosage: 4 CAPSULES, 1X/DAY
     Route: 048
     Dates: start: 20250823, end: 20250823
  2. VOWST [Suspect]
     Active Substance: DONOR HUMAN STOOL SPORES (ETHANOL TREATED)
     Dosage: 4 CAPSULES, ONCE, LAST DOSE PRIOR TO EVENT
     Route: 048
     Dates: start: 20250823, end: 20250823

REACTIONS (3)
  - Clostridium difficile infection [Unknown]
  - Vomiting [Recovered/Resolved]
  - Product size issue [Unknown]

NARRATIVE: CASE EVENT DATE: 20250824
